FAERS Safety Report 24378653 (Version 1)
Quarter: 2024Q3

REPORT INFORMATION
  Report Type: Spontaneous
  Country: US (occurrence: US)
  Receive Date: 20240930
  Receipt Date: 20240930
  Transmission Date: 20241017
  Serious: No
  Sender: ELI LILLY AND CO
  Company Number: US-ELI_LILLY_AND_COMPANY-US202409015715

PATIENT
  Age: 53 Year
  Sex: Female

DRUGS (1)
  1. TALTZ [Suspect]
     Active Substance: IXEKIZUMAB
     Indication: Product used for unknown indication
     Dosage: 160 MG (LOADING DOSE)
     Route: 065
     Dates: start: 20240906

REACTIONS (8)
  - Rash [Unknown]
  - Dermatitis [Unknown]
  - Skin irritation [Recovering/Resolving]
  - Pruritus [Unknown]
  - Periorbital swelling [Recovered/Resolved]
  - Alopecia [Unknown]
  - Eyelid skin dryness [Unknown]
  - Eyelids pruritus [Unknown]
